FAERS Safety Report 12601504 (Version 1)
Quarter: 2016Q3

REPORT INFORMATION
  Report Type: Spontaneous
  Country: US (occurrence: None)
  Receive Date: 20160727
  Receipt Date: 20160727
  Transmission Date: 20161109
  Serious: Yes (Other)
  Sender: FDA-Public Use
  Company Number: None

PATIENT
  Age: 48 Year
  Sex: Female
  Weight: 72.58 kg

DRUGS (2)
  1. CITALOPRAM, 20 MG [Suspect]
     Active Substance: CITALOPRAM HYDROBROMIDE
     Indication: ANXIETY
     Route: 048
     Dates: start: 20160611, end: 20160717
  2. CITALOPRAM, 20 MG [Suspect]
     Active Substance: CITALOPRAM HYDROBROMIDE
     Indication: DEPRESSION
     Route: 048
     Dates: start: 20160611, end: 20160717

REACTIONS (8)
  - Bone pain [None]
  - Panic reaction [None]
  - Musculoskeletal stiffness [None]
  - Mood swings [None]
  - Anxiety [None]
  - Anger [None]
  - Chest pain [None]
  - Hypoaesthesia [None]

NARRATIVE: CASE EVENT DATE: 20160714
